FAERS Safety Report 5650987-4 (Version None)
Quarter: 2008Q1

REPORT INFORMATION
  Report Type: 
  Country: None (occurrence: None)
  Receive Date: 20080305
  Receipt Date: 20080226
  Transmission Date: 20080703
  Serious: Yes (Other)
  Sender: FDA-Public Use
  Company Number: GB-WYE-G01097208

PATIENT
  Sex: Male

DRUGS (2)
  1. REFACTO [Suspect]
     Indication: FACTOR VIII DEFICIENCY
     Dosage: LOW DOSE TOLERENCE REGIME
  2. REFACTO [Suspect]
     Dosage: UNKNOWN

REACTIONS (1)
  - FACTOR VIII INHIBITION [None]
